FAERS Safety Report 6501333-5 (Version None)
Quarter: 2009Q4

REPORT INFORMATION
  Report Type: 
  Country: None (occurrence: None)
  Receive Date: 20091215
  Receipt Date: 20091215
  Transmission Date: 20100525
  Serious: Yes (Other)
  Sender: FDA-Public Use
  Company Number: None

PATIENT
  Sex: Male
  Weight: 81.4 kg

DRUGS (24)
  1. FERAHEME [Suspect]
     Indication: ANAEMIA OF CHRONIC DISEASE
     Dosage: 510MG IV ONE TIME
     Route: 042
     Dates: start: 20091111
  2. FERAHEME [Suspect]
     Indication: RENAL FAILURE CHRONIC
     Dosage: 510MG IV ONE TIME
     Route: 042
     Dates: start: 20091111
  3. EPOGEN [Concomitant]
  4. HEPARIN DWELL [Concomitant]
  5. SODIUM CHLORIDE INTRAVENOUS SOLUTION [Concomitant]
  6. SODIUM REPLACEMENT INTRAVEN. [Concomitant]
  7. TYLENOL (CAPLET) [Concomitant]
  8. OXYGEN-AIR DELIVERY SYSTEMS MISCELL. [Concomitant]
  9. HEPARIN SODIUM [Concomitant]
  10. ZEMPLAR [Concomitant]
  11. ERGOCALCIFEROL (VITAMIN D2) [Concomitant]
  12. RECOMBINVAX HB [Concomitant]
  13. AFLURIA [Concomitant]
  14. TUBERSOL [Concomitant]
  15. KEFLEX [Concomitant]
  16. GLIPIZIDE [Concomitant]
  17. CARVEDILOL [Concomitant]
  18. DIOVAN [Concomitant]
  19. PHOSLO GELCAPS [Concomitant]
  20. PRAVASTATIN SODIUM [Concomitant]
  21. FUROSEMIDE [Concomitant]
  22. AMLODIPINE BESYLATE [Concomitant]
  23. AMOXICILLIN [Concomitant]
  24. ASPIRIN [Concomitant]

REACTIONS (6)
  - DRUG INEFFECTIVE [None]
  - INFUSION RELATED REACTION [None]
  - LIP SWELLING [None]
  - PERIORBITAL OEDEMA [None]
  - PHARYNGEAL OEDEMA [None]
  - THROAT IRRITATION [None]
